FAERS Safety Report 23117086 (Version 1)
Quarter: 2023Q4

REPORT INFORMATION
  Report Type: Spontaneous
  Country: ZA (occurrence: ZA)
  Receive Date: 20231027
  Receipt Date: 20231027
  Transmission Date: 20240110
  Serious: Yes (Other)
  Sender: FDA-Public Use
  Company Number: ZA-NALPROPION PHARMACEUTICALS INC.-ZA-2023CUR004466

PATIENT
  Sex: Male

DRUGS (1)
  1. CONTRAVE [Suspect]
     Active Substance: BUPROPION HYDROCHLORIDE\NALTREXONE HYDROCHLORIDE
     Indication: Weight control
     Dosage: UNKNOWN
     Route: 048

REACTIONS (1)
  - Neuropathy peripheral [Recovered/Resolved]
